APPROVED DRUG PRODUCT: IOHEXOL
Active Ingredient: IOHEXOL
Strength: 64.7%
Dosage Form/Route: SOLUTION;INJECTION, ORAL, RECTAL
Application: A217737 | Product #001 | TE Code: AP
Applicant: AMNEAL EU LTD
Approved: Nov 13, 2025 | RLD: No | RS: No | Type: RX

EXCLUSIVITY:
Code: CGT | Date: Jul 26, 2026